FAERS Safety Report 23592276 (Version 1)
Quarter: 2024Q1

REPORT INFORMATION
  Report Type: Spontaneous
  Country: US (occurrence: US)
  Receive Date: 20240304
  Receipt Date: 20240304
  Transmission Date: 20240409
  Serious: No
  Sender: FDA-Public Use
  Company Number: US-LEO Pharma-367530

PATIENT
  Age: 63 Year
  Sex: Male

DRUGS (4)
  1. ADBRY [Suspect]
     Active Substance: TRALOKINUMAB-LDRM
     Indication: Dermatitis atopic
     Route: 058
  2. hydroxyzine tab 25mg [Concomitant]
     Indication: Product used for unknown indication
     Dosage: HYDROXYZINE TAB 25MG
  3. triamcinolone ointment 0.1% [Concomitant]
     Indication: Product used for unknown indication
     Dosage: TRIAMCINOLONE OINTMENT 0.1%
  4. clobetasol p ointment 0.05% [Concomitant]
     Indication: Product used for unknown indication
     Dosage: CLOBETASOL P OINTMENT 0.05%

REACTIONS (2)
  - Pruritus [Recovering/Resolving]
  - Drug ineffective [Unknown]
